FAERS Safety Report 9002789 (Version 1)
Quarter: 2013Q1

REPORT INFORMATION
  Report Type: Spontaneous
  Country: US (occurrence: US)
  Receive Date: 20130107
  Receipt Date: 20130107
  Transmission Date: 20140127
  Serious: No
  Sender: FDA-Public Use
  Company Number: US-GLAXOSMITHKLINE-A1004064A

PATIENT
  Age: 52 Year
  Sex: Female

DRUGS (3)
  1. BENLYSTA [Suspect]
     Indication: SYSTEMIC LUPUS ERYTHEMATOSUS
     Route: 042
     Dates: start: 201112
  2. PLAQUENIL [Concomitant]
  3. SYNTHROID [Concomitant]

REACTIONS (4)
  - Fatigue [Recovered/Resolved]
  - Joint swelling [Unknown]
  - Depression [Unknown]
  - Asthenia [Unknown]
